FAERS Safety Report 22060124 (Version 1)
Quarter: 2023Q1

REPORT INFORMATION
  Report Type: Spontaneous
  Country: AU (occurrence: AU)
  Receive Date: 20230303
  Receipt Date: 20230303
  Transmission Date: 20230418
  Serious: Yes (Other)
  Sender: FDA-Public Use
  Company Number: AU-009507513-2302AUS008675

PATIENT
  Age: 34 Year
  Sex: Female

DRUGS (2)
  1. PEMBROLIZUMAB [Suspect]
     Active Substance: PEMBROLIZUMAB
     Indication: Triple negative breast cancer
     Dosage: UNK
  2. ZOLADEX [Concomitant]
     Active Substance: GOSERELIN ACETATE

REACTIONS (4)
  - Immune-mediated thyroiditis [Unknown]
  - Sjogren^s syndrome [Unknown]
  - Immune-mediated adrenal insufficiency [Unknown]
  - Radiotherapy to lymph nodes [Unknown]
